FAERS Safety Report 17768195 (Version 1)
Quarter: 2020Q2

REPORT INFORMATION
  Report Type: Spontaneous
  Country: US (occurrence: US)
  Receive Date: 20200511
  Receipt Date: 20200511
  Transmission Date: 20200714
  Serious: No
  Sender: FDA-Public Use
  Company Number: US-CELGENEUS-USA-20200500202

PATIENT
  Age: 38 Year
  Sex: Female

DRUGS (1)
  1. OTEZLA [Suspect]
     Active Substance: APREMILAST
     Indication: BEHCET^S SYNDROME
     Dosage: 60 MILLIGRAM
     Route: 048
     Dates: start: 20190731

REACTIONS (5)
  - Product dose omission [Unknown]
  - Abdominal discomfort [Not Recovered/Not Resolved]
  - Fatigue [Not Recovered/Not Resolved]
  - Behcet^s syndrome [Not Recovered/Not Resolved]
  - Epistaxis [Not Recovered/Not Resolved]

NARRATIVE: CASE EVENT DATE: 20200428
